FAERS Safety Report 12432734 (Version 2)
Quarter: 2016Q3

REPORT INFORMATION
  Report Type: Spontaneous
  Country: US (occurrence: US)
  Receive Date: 20160603
  Receipt Date: 20160705
  Transmission Date: 20161109
  Serious: Yes (Other)
  Sender: FDA-Public Use
  Company Number: PHEH2016US013321

PATIENT
  Sex: Male

DRUGS (8)
  1. RITALIN [Suspect]
     Active Substance: METHYLPHENIDATE HYDROCHLORIDE
     Indication: PRODUCT USED FOR UNKNOWN INDICATION
     Dosage: 10 MG, TID
     Route: 065
  2. RITALIN [Suspect]
     Active Substance: METHYLPHENIDATE HYDROCHLORIDE
     Dosage: 7 DF, QD (7 TABLET OF 20 MG MORNING)
     Route: 065
  3. RISPERDAL [Concomitant]
     Active Substance: RISPERIDONE
     Indication: SLEEP DISORDER
     Route: 065
  4. RITALIN [Suspect]
     Active Substance: METHYLPHENIDATE HYDROCHLORIDE
     Dosage: 3 DF, QD (3/ 20 MG PILLS)
     Route: 065
  5. MULTIVITAMINS [Concomitant]
     Active Substance: VITAMINS
     Indication: PRODUCT USED FOR UNKNOWN INDICATION
     Route: 065
  6. RITALIN [Suspect]
     Active Substance: METHYLPHENIDATE HYDROCHLORIDE
     Dosage: 12 DF, QD (12 TABLET OF 20 MG)
     Route: 065
  7. RITALIN [Suspect]
     Active Substance: METHYLPHENIDATE HYDROCHLORIDE
     Dosage: 15 DF, QD (15 TABLET OF 20 MG DAILY)
     Route: 065
  8. RITALIN [Suspect]
     Active Substance: METHYLPHENIDATE HYDROCHLORIDE
     Dosage: 6 DF, QD (6/ 20 MG PILLS)

REACTIONS (19)
  - Brain injury [Unknown]
  - Stab wound [Unknown]
  - Malaise [Unknown]
  - Drug ineffective [Unknown]
  - Tetanus [Unknown]
  - Thrombosis [Unknown]
  - Hypermetabolism [Unknown]
  - Hepatic infection [Unknown]
  - Gas gangrene [Unknown]
  - Fungal infection [Unknown]
  - Liver injury [Unknown]
  - Bruxism [Unknown]
  - Central nervous system infection [Unknown]
  - Botulism [Unknown]
  - Infection [Unknown]
  - Tooth infection [Unknown]
  - Skin lesion [Unknown]
  - Staring [Unknown]
  - Rabies [Unknown]
